FAERS Safety Report 13364264 (Version 1)
Quarter: 2017Q1

REPORT INFORMATION
  Report Type: Spontaneous
  Country: US (occurrence: US)
  Receive Date: 20170322
  Receipt Date: 20170322
  Transmission Date: 20170429
  Serious: Yes (Other)
  Sender: FDA-Public Use
  Company Number: None

PATIENT
  Age: 59 Year
  Sex: Male
  Weight: 87.5 kg

DRUGS (1)
  1. ELBASVIR /GRAZOPREVIR [Suspect]
     Active Substance: ELBASVIR\GRAZOPREVIR
     Indication: HEPATITIS C
     Dosage: 50/100MG EVERY DAY PO
     Route: 048
     Dates: start: 20161004

REACTIONS (3)
  - Decreased appetite [None]
  - Condition aggravated [None]
  - Tinnitus [None]

NARRATIVE: CASE EVENT DATE: 20161101
